FAERS Safety Report 9817269 (Version 1)
Quarter: 2014Q1

REPORT INFORMATION
  Report Type: Spontaneous
  Country: US (occurrence: US)
  Receive Date: 20140115
  Receipt Date: 20140115
  Transmission Date: 20141002
  Serious: Yes (Hospitalization)
  Sender: FDA-Public Use
  Company Number: US-PFIZER INC-2014007702

PATIENT
  Age: 46 Year
  Sex: Female

DRUGS (9)
  1. PRISTIQ [Suspect]
     Indication: DEPRESSION
     Dosage: 400 MG, DAILY
     Dates: end: 201204
  2. LITHIUM [Concomitant]
     Dosage: 900 MG, UNK
  3. CLONAZEPAM [Concomitant]
     Dosage: 0.5 AS NEEDED QAM
  4. ABILIFY [Concomitant]
     Dosage: 5 MG, QAM
  5. LEVOTHYROXINE [Concomitant]
     Dosage: UNK
  6. ESTROGEN NOS, PROGESTERONE [Concomitant]
     Dosage: UNK
  7. TRAVATAN [Concomitant]
     Dosage: UNK
     Route: 047
  8. CALCIUM MEFOLINATE [Concomitant]
     Dosage: UNK
  9. L-METHYLFOLATE [Concomitant]
     Dosage: UNK

REACTIONS (2)
  - Suicidal ideation [Unknown]
  - Depression [Recovered/Resolved]
